FAERS Safety Report 15366498 (Version 1)
Quarter: 2018Q3

REPORT INFORMATION
  Report Type: Spontaneous
  Country: US (occurrence: US)
  Receive Date: 20180831
  Receipt Date: 20180831
  Transmission Date: 20181010
  Serious: Yes (Other)
  Sender: FDA-Public Use
  Company Number: None

PATIENT
  Age: 77 Year
  Sex: Male
  Weight: 84 kg

DRUGS (2)
  1. TELAVANCIN [Suspect]
     Active Substance: TELAVANCIN
     Indication: BACTERAEMIA
     Route: 041
     Dates: start: 20180814, end: 20180827
  2. TELAVANCIN [Suspect]
     Active Substance: TELAVANCIN
     Indication: STAPHYLOCOCCAL INFECTION
     Route: 041
     Dates: start: 20180814, end: 20180827

REACTIONS (6)
  - Pyrexia [None]
  - Chills [None]
  - Hypertension [None]
  - Tachycardia [None]
  - Staphylococcal infection [None]
  - Blood culture positive [None]

NARRATIVE: CASE EVENT DATE: 20180823
